FAERS Safety Report 9644660 (Version 1)
Quarter: 2013Q4

REPORT INFORMATION
  Report Type: Report from Study
  Country: US (occurrence: US)
  Receive Date: 20131025
  Receipt Date: 20131025
  Transmission Date: 20140711
  Serious: Yes (Hospitalization)
  Sender: FDA-Public Use
  Company Number: US-JNJFOC-20131011857

PATIENT
  Age: 17 Year
  Sex: Male
  Weight: 67.2 kg

DRUGS (2)
  1. REMICADE [Suspect]
     Indication: CROHN^S DISEASE
     Route: 042
     Dates: start: 20110330
  2. DOXYCYCLINE [Concomitant]
     Route: 065

REACTIONS (1)
  - Constipation [Recovered/Resolved]
